FAERS Safety Report 9653668 (Version 1)
Quarter: 2013Q4

REPORT INFORMATION
  Report Type: Spontaneous
  Country: US (occurrence: US)
  Receive Date: 20131029
  Receipt Date: 20131029
  Transmission Date: 20140711
  Serious: No
  Sender: FDA-Public Use
  Company Number: US-BIOGENIDEC-2013BI080065

PATIENT
  Age: 67 Year
  Sex: Female

DRUGS (6)
  1. TECFIDERA [Suspect]
     Indication: MULTIPLE SCLEROSIS
     Route: 048
     Dates: start: 20130723, end: 20130730
  2. TECFIDERA [Suspect]
     Indication: MULTIPLE SCLEROSIS
     Route: 048
     Dates: start: 20130731
  3. AMPYRA [Concomitant]
  4. LOTREL [Concomitant]
  5. PRAVASTATIN [Concomitant]
  6. ASPIRIN [Concomitant]

REACTIONS (4)
  - Fatigue [Not Recovered/Not Resolved]
  - Lymph node pain [Not Recovered/Not Resolved]
  - Gait disturbance [Unknown]
  - Weight increased [Unknown]
